FAERS Safety Report 20723614 (Version 3)
Quarter: 2022Q2

REPORT INFORMATION
  Report Type: Spontaneous
  Country: US (occurrence: US)
  Receive Date: 20220419
  Receipt Date: 20220620
  Transmission Date: 20220720
  Serious: Yes (Other)
  Sender: FDA-Public Use
  Company Number: US-JNJFOC-20220425105

PATIENT
  Age: 59 Year
  Sex: Female
  Weight: 76.272 kg

DRUGS (1)
  1. SIMPONI [Suspect]
     Active Substance: GOLIMUMAB
     Indication: Rheumatoid arthritis
     Route: 058
     Dates: start: 20210929

REACTIONS (7)
  - Loss of consciousness [Unknown]
  - Head injury [Unknown]
  - Foot fracture [Unknown]
  - Complication associated with device [Unknown]
  - Product label issue [Unknown]
  - Nasopharyngitis [Unknown]
  - Inappropriate schedule of product administration [Unknown]
